FAERS Safety Report 25812449 (Version 2)
Quarter: 2025Q4

REPORT INFORMATION
  Report Type: Spontaneous
  Country: US (occurrence: US)
  Receive Date: 20250917
  Receipt Date: 20251006
  Transmission Date: 20260117
  Serious: Yes (Other)
  Sender: DERMARITE INDUSTRIES
  Company Number: US-DERMARITE INDUSTRIES, LLC.-2025-DER-US000006

PATIENT

DRUGS (2)
  1. DERMASARRA [Suspect]
     Active Substance: CAMPHOR (NATURAL)\MENTHOL
     Indication: Rash pruritic
     Dosage: EACH MORNING AND BEFORE BED FOR 5 DAYS, BID
     Route: 065
     Dates: start: 20250705, end: 20250708
  2. LISINOPRIL [Concomitant]
     Active Substance: LISINOPRIL
     Indication: Product used for unknown indication

REACTIONS (1)
  - Urticaria [Not Recovered/Not Resolved]

NARRATIVE: CASE EVENT DATE: 20250701
